FAERS Safety Report 6733266-3 (Version None)
Quarter: 2010Q2

REPORT INFORMATION
  Report Type: 
  Country: None (occurrence: None)
  Receive Date: 20100520
  Receipt Date: 20100510
  Transmission Date: 20101027
  Serious: Yes (Other)
  Sender: FDA-Public Use
  Company Number: AT-JNJFOC-20100502687

PATIENT
  Age: 25 Year
  Sex: Male

DRUGS (7)
  1. RISPERDAL [Suspect]
     Indication: DRUG USE FOR UNKNOWN INDICATION
     Route: 065
  2. CISORDINOL ACUTARD [Suspect]
     Indication: DRUG USE FOR UNKNOWN INDICATION
     Route: 065
  3. CISORDINOL ACUTARD [Suspect]
     Route: 065
  4. LORAZEPAM [Concomitant]
     Route: 065
  5. LORAZEPAM [Concomitant]
     Route: 065
  6. PANTOPRAZOLE [Concomitant]
     Route: 065
  7. KEMADRIN [Concomitant]
     Route: 065

REACTIONS (3)
  - ANXIETY [None]
  - EXTRAPYRAMIDAL DISORDER [None]
  - HYPERHIDROSIS [None]
